FAERS Safety Report 6323579-1 (Version None)
Quarter: 2009Q3

REPORT INFORMATION
  Report Type: 
  Country: None (occurrence: None)
  Receive Date: 20090824
  Receipt Date: 20090610
  Transmission Date: 20100115
  Serious: No
  Sender: FDA-Public Use
  Company Number: US-ABBOTT-09P-163-0579032-00

PATIENT
  Sex: Female
  Weight: 88.53 kg

DRUGS (6)
  1. NIASPAN [Suspect]
     Indication: HIGH DENSITY LIPOPROTEIN DECREASED
     Route: 048
     Dates: start: 20090601
  2. CLONIDINE [Concomitant]
     Indication: HYPERTENSION
     Route: 048
  3. AZORE [Concomitant]
     Indication: HYPERTENSION
     Route: 048
  4. HYDROCHLOROTHIAZIDE [Concomitant]
     Indication: HYPERTENSION
     Route: 048
  5. UNKNOWN BETA BLOCKER [Concomitant]
     Indication: HYPERTENSION
     Dosage: UNKNOWN
     Route: 048
  6. KLONOPIN [Concomitant]
     Indication: ANXIETY
     Route: 048

REACTIONS (3)
  - HEADACHE [None]
  - MYALGIA [None]
  - NAUSEA [None]
